FAERS Safety Report 4826857-8 (Version None)
Quarter: 2005Q4

REPORT INFORMATION
  Report Type: 
  Country: None (occurrence: None)
  Receive Date: 20051014
  Receipt Date: 20050720
  Transmission Date: 20060501
  Serious: No
  Sender: FDA-Public Use
  Company Number: 2005SP001963

PATIENT
  Age: 40 Year
  Sex: Female
  Weight: 72.5755 kg

DRUGS (4)
  1. LUNESTA [Suspect]
     Indication: INSOMNIA
     Dosage: 2 MG;HS;ORAL, 1 MG;HS;ORAL, 2 MG;HS;ORAL
     Route: 048
     Dates: start: 20050501, end: 20050701
  2. LUNESTA [Suspect]
     Indication: INSOMNIA
     Dosage: 2 MG;HS;ORAL, 1 MG;HS;ORAL, 2 MG;HS;ORAL
     Route: 048
     Dates: start: 20050701, end: 20050701
  3. LUNESTA [Suspect]
     Indication: INSOMNIA
     Dosage: 2 MG;HS;ORAL, 1 MG;HS;ORAL, 2 MG;HS;ORAL
     Route: 048
     Dates: start: 20050701
  4. SYNTHROID [Concomitant]

REACTIONS (2)
  - PHARYNGOLARYNGEAL PAIN [None]
  - SOMNOLENCE [None]
